FAERS Safety Report 8601160-9 (Version None)
Quarter: 2012Q3

REPORT INFORMATION
  Report Type: 
  Country: None (occurrence: None)
  Receive Date: 20120817
  Receipt Date: 20120814
  Transmission Date: 20120928
  Serious: Yes (Death, Hospitalization)
  Sender: FDA-Public Use
  Company Number: PHHY2012BR070698

PATIENT
  Sex: Female
  Weight: 47 kg

DRUGS (2)
  1. EXELON [Suspect]
     Indication: DEMENTIA ALZHEIMER'S TYPE
     Dosage: 1 PATCH (9MG/5CM2) A DAY
     Route: 062
     Dates: start: 20120201
  2. EXELON [Suspect]
     Dosage: 1 PATCH (18MG/10CM2) A DAY
     Route: 062

REACTIONS (5)
  - METASTATIC NEOPLASM [None]
  - RESPIRATORY FAILURE [None]
  - HEPATIC NEOPLASM MALIGNANT [None]
  - ASTHENIA [None]
  - BLADDER CANCER [None]
